FAERS Safety Report 19419591 (Version 2)
Quarter: 2021Q3

REPORT INFORMATION
  Report Type: Other
  Country: DE (occurrence: DE)
  Receive Date: 20210615
  Receipt Date: 20210713
  Transmission Date: 20211014
  Serious: Yes (Hospitalization)
  Sender: FDA-Public Use
  Company Number: DE-NOVA LABORATORIES LIMITED-2112748

PATIENT
  Age: 33 Year
  Sex: Male

DRUGS (8)
  1. ADALIMUMAB [Suspect]
     Active Substance: ADALIMUMAB
  2. VEDOLIZUMAB [Suspect]
     Active Substance: VEDOLIZUMAB
  3. CYCLOSPORIN [Concomitant]
     Active Substance: CYCLOSPORINE
     Dates: start: 2017, end: 2017
  4. TOFACITINIB [Suspect]
     Active Substance: TOFACITINIB
  5. PURIXAN [Suspect]
     Active Substance: MERCAPTOPURINE
     Indication: COLITIS ULCERATIVE
  6. AZATHIOPRINE. [Suspect]
     Active Substance: AZATHIOPRINE
     Dates: start: 2017, end: 2017
  7. INFLIXIMAB [Suspect]
     Active Substance: INFLIXIMAB
  8. PREDNISOLONE. [Suspect]
     Active Substance: PREDNISOLONE
     Route: 042

REACTIONS (8)
  - Off label use [None]
  - Colitis ulcerative [Unknown]
  - Vertigo [Unknown]
  - Headache [Unknown]
  - Nausea [Unknown]
  - Treatment failure [Unknown]
  - Drug resistance [Unknown]
  - Drug intolerance [Unknown]
